FAERS Safety Report 21748065 (Version 1)
Quarter: 2022Q4

REPORT INFORMATION
  Report Type: Report from Study
  Country: BR (occurrence: BR)
  Receive Date: 20221219
  Receipt Date: 20221219
  Transmission Date: 20230112
  Serious: Yes (Other)
  Sender: FDA-Public Use
  Company Number: BR-JNJFOC-20221034612

PATIENT
  Age: 65 Year
  Sex: Female
  Weight: 82 kg

DRUGS (3)
  1. SIMPONI [Suspect]
     Active Substance: GOLIMUMAB
     Indication: Rheumatoid arthritis
     Route: 058
     Dates: start: 20220729, end: 20220829
  2. ENALAPRIL [Concomitant]
     Active Substance: ENALAPRIL
     Indication: Hypertension
     Route: 048
  3. HYDROXYCHLOROQUINE [Concomitant]
     Active Substance: HYDROXYCHLOROQUINE
     Indication: Rheumatoid arthritis
     Route: 048

REACTIONS (7)
  - Asthenia [Unknown]
  - Rash [Unknown]
  - Hypersensitivity [Not Recovered/Not Resolved]
  - Muscular weakness [Unknown]
  - Gait inability [Unknown]
  - Poor quality sleep [Unknown]
  - Arthralgia [Unknown]

NARRATIVE: CASE EVENT DATE: 20220803
